FAERS Safety Report 13212865 (Version 1)
Quarter: 2017Q1

REPORT INFORMATION
  Report Type: Spontaneous
  Country: JP (occurrence: JP)
  Receive Date: 20170210
  Receipt Date: 20170210
  Transmission Date: 20170428
  Serious: Yes (Death, Hospitalization)
  Sender: FDA-Public Use
  Company Number: JP-TEVA-737328ISR

PATIENT
  Age: 85 Year
  Sex: Male

DRUGS (3)
  1. CEFTRIAXONE. [Interacting]
     Active Substance: CEFTRIAXONE
     Indication: SINUSITIS ASPERGILLUS
     Dosage: 2 GRAM DAILY;
     Route: 065
  2. VORICONAZOLE. [Suspect]
     Active Substance: VORICONAZOLE
     Indication: SINUSITIS ASPERGILLUS
     Route: 065
  3. BETAMETHASONE. [Suspect]
     Active Substance: BETAMETHASONE
     Dosage: 12MG/DAY
     Route: 042

REACTIONS (7)
  - Drug interaction [Unknown]
  - Cardio-respiratory arrest [Fatal]
  - Sinusitis aspergillus [Fatal]
  - Treatment failure [Unknown]
  - Subarachnoid haemorrhage [Unknown]
  - Intracranial aneurysm [Unknown]
  - Brain oedema [Unknown]
